FAERS Safety Report 4330374-1 (Version None)
Quarter: 2004Q2

REPORT INFORMATION
  Report Type: 
  Country: None (occurrence: None)
  Receive Date: 20040401
  Receipt Date: 20040401
  Transmission Date: 20050107
  Serious: Yes (Other)
  Sender: FDA-Public Use
  Company Number: None

PATIENT
  Sex: Female
  Weight: 86 kg

DRUGS (5)
  1. DEMEROL [Suspect]
     Indication: PAIN
     Dosage: 75 MG Q 4H PRN INTRAVENOUS
     Route: 042
     Dates: start: 20040329, end: 20040329
  2. DULCOLAX [Concomitant]
  3. D5 / LACTATED RINGERS W/20MEQ KCL [Concomitant]
  4. PROMETHAZINE [Concomitant]
  5. DEMEROL [Concomitant]

REACTIONS (2)
  - PRURITUS [None]
  - URTICARIA [None]
